FAERS Safety Report 9430153 (Version 1)
Quarter: 2013Q3

REPORT INFORMATION
  Report Type: Spontaneous
  Country: AU (occurrence: AU)
  Receive Date: 20130730
  Receipt Date: 20130730
  Transmission Date: 20140515
  Serious: Yes (Hospitalization)
  Sender: FDA-Public Use
  Company Number: AU-BAXTER-2013BAX029154

PATIENT
  Sex: Female

DRUGS (2)
  1. BAXTER 0.9% SODIUM CHLORIDE 4.5G_500ML INJECTION BP BAG AHB1323 [Suspect]
     Indication: PRODUCT USED FOR UNKNOWN INDICATION
     Route: 042
     Dates: start: 20130625
  2. DOCETAXEL [Suspect]
     Indication: PRODUCT USED FOR UNKNOWN INDICATION
     Dosage: 85MG/8.5ML
     Route: 042
     Dates: start: 20130625

REACTIONS (4)
  - Pyrexia [Recovering/Resolving]
  - Palmar-plantar erythrodysaesthesia syndrome [Recovering/Resolving]
  - Mouth ulceration [Recovering/Resolving]
  - Oral candidiasis [Recovering/Resolving]
